FAERS Safety Report 17949276 (Version 1)
Quarter: 2020Q2

REPORT INFORMATION
  Report Type: Spontaneous
  Country: US (occurrence: US)
  Receive Date: 20200625
  Receipt Date: 20200625
  Transmission Date: 20200714
  Serious: Yes (Death)
  Sender: FDA-Public Use
  Company Number: None

PATIENT
  Sex: Female

DRUGS (20)
  1. BUPROPN HCL [Concomitant]
     Active Substance: BUPROPION HYDROCHLORIDE
  2. LEVOTHYROXIN [Concomitant]
     Active Substance: LEVOTHYROXINE
  3. ROSUVASTATIN. [Concomitant]
     Active Substance: ROSUVASTATIN
  4. ELIQUIS [Concomitant]
     Active Substance: APIXABAN
  5. PRAMIPEXOLE. [Concomitant]
     Active Substance: PRAMIPEXOLE
  6. VITAMIN D [Concomitant]
     Active Substance: VITAMIN D NOS
  7. KETOROLAC [Concomitant]
     Active Substance: KETOROLAC TROMETHAMINE
  8. BUPROPION. [Concomitant]
     Active Substance: BUPROPION
  9. METFORMIN [Concomitant]
     Active Substance: METFORMIN HYDROCHLORIDE
  10. RANITIDINE. [Concomitant]
     Active Substance: RANITIDINE
  11. CARVEDILOL. [Concomitant]
     Active Substance: CARVEDILOL
  12. DONEPEZIL. [Concomitant]
     Active Substance: DONEPEZIL
  13. JANUVIA [Concomitant]
     Active Substance: SITAGLIPTIN PHOSPHATE
  14. SPIRONOLACT [Concomitant]
     Active Substance: SPIRONOLACTONE
  15. GLIMEPIRIED [Concomitant]
  16. PREDNISOLONE. [Concomitant]
     Active Substance: PREDNISOLONE
  17. SERTRALINE [Concomitant]
     Active Substance: SERTRALINE HYDROCHLORIDE
  18. DOFETILIDE 125MCG CAP [Suspect]
     Active Substance: DOFETILIDE
     Route: 048
     Dates: start: 20180207
  19. IPRATROPIUM [Concomitant]
     Active Substance: IPRATROPIUM
  20. LISINOPRIL. [Concomitant]
     Active Substance: LISINOPRIL

REACTIONS (1)
  - Death [None]
